FAERS Safety Report 6521295-4 (Version None)
Quarter: 2009Q4

REPORT INFORMATION
  Report Type: 
  Country: None (occurrence: None)
  Receive Date: 20091230
  Receipt Date: 20091207
  Transmission Date: 20100525
  Serious: Yes (Hospitalization)
  Sender: FDA-Public Use
  Company Number: FR-JNJFOC-20091205597

PATIENT
  Sex: Male

DRUGS (3)
  1. TRAMADOL HCL [Suspect]
     Indication: DRUG USE FOR UNKNOWN INDICATION
     Route: 048
  2. APRANAX [Concomitant]
  3. PARACETAMOL [Concomitant]

REACTIONS (12)
  - DRUG SCREEN POSITIVE [None]
  - FACIAL BONES FRACTURE [None]
  - HOT FLUSH [None]
  - HYPERHIDROSIS [None]
  - HYPOKALAEMIA [None]
  - LOSS OF CONSCIOUSNESS [None]
  - MALAISE [None]
  - OVERDOSE [None]
  - RENAL FAILURE [None]
  - RHABDOMYOLYSIS [None]
  - TREMOR [None]
  - WOUND [None]
